FAERS Safety Report 21966585 (Version 1)
Quarter: 2023Q1

REPORT INFORMATION
  Report Type: Spontaneous
  Country: CN (occurrence: CN)
  Receive Date: 20230208
  Receipt Date: 20230208
  Transmission Date: 20230418
  Serious: Yes (Hospitalization, Other)
  Sender: FDA-Public Use
  Company Number: CN-Accord-299402

PATIENT
  Age: 44 Year
  Sex: Male

DRUGS (5)
  1. ETOPOSIDE [Suspect]
     Active Substance: ETOPOSIDE
     Indication: Enteropathy-associated T-cell lymphoma
     Dates: start: 20210801, end: 20210804
  2. METHOTREXATE [Suspect]
     Active Substance: METHOTREXATE
     Indication: Enteropathy-associated T-cell lymphoma
     Dates: start: 20210801, end: 20210804
  3. IFOSFAMIDE [Suspect]
     Active Substance: IFOSFAMIDE
     Indication: Enteropathy-associated T-cell lymphoma
     Dates: start: 20210801, end: 20210804
  4. ASPARAGINASE [Suspect]
     Active Substance: ASPARAGINASE
     Indication: Enteropathy-associated T-cell lymphoma
     Dates: start: 20210801, end: 20210804
  5. DEXAMETHASONE [Suspect]
     Active Substance: DEXAMETHASONE
     Indication: Enteropathy-associated T-cell lymphoma
     Dates: start: 20210801, end: 20210804

REACTIONS (2)
  - Haematochezia [Recovered/Resolved]
  - Diarrhoea [Recovered/Resolved]
